FAERS Safety Report 4946425-7 (Version None)
Quarter: 2006Q1

REPORT INFORMATION
  Report Type: 
  Country: None (occurrence: None)
  Receive Date: 20060313
  Receipt Date: 20060306
  Transmission Date: 20060701
  Serious: Yes (Hospitalization)
  Sender: FDA-Public Use
  Company Number: 060026

PATIENT
  Age: 44 Year
  Sex: Male

DRUGS (4)
  1. HALFLYTELY [Suspect]
     Indication: COLONOSCOPY
     Dosage: 20MG/2-8OZ, 1X, PO
     Route: 048
     Dates: start: 20060213
  2. LISONOPRIL [Concomitant]
  3. NEXIUM [Concomitant]
  4. LIPITOR [Concomitant]

REACTIONS (1)
  - ANAPHYLACTIC REACTION [None]
